FAERS Safety Report 9525140 (Version 2)
Quarter: 2013Q3

REPORT INFORMATION
  Report Type: Spontaneous
  Country: BR (occurrence: BR)
  Receive Date: 20130916
  Receipt Date: 20130916
  Transmission Date: 20140515
  Serious: Yes (Other)
  Sender: FDA-Public Use
  Company Number: BR-SANOFI-AVENTIS-2013SA023146

PATIENT
  Age: 29 Year
  Sex: Female
  Weight: 52 kg

DRUGS (4)
  1. CLEXANE [Suspect]
     Indication: HYPERCOAGULATION
     Route: 058
     Dates: start: 201211, end: 201301
  2. CLEXANE [Suspect]
     Indication: HYPERCOAGULATION
     Dosage: DOSAGE: 1 INJECTION QD AT 11 PM?TREATMENT WAS STOPPED 40 DAYS AFTER DELIVERY.
     Route: 058
     Dates: start: 201301, end: 201308
  3. FOLIC ACID [Concomitant]
     Indication: VITAMIN SUPPLEMENTATION
     Route: 048
     Dates: start: 2010, end: 20130704
  4. UTROGESTAN [Concomitant]
     Dosage: BEFORE SLEEP?SRENGTH: 200 MG
     Route: 048
     Dates: start: 201211, end: 20130704

REACTIONS (3)
  - Cervical incompetence [Recovered/Resolved]
  - Vascular resistance systemic increased [Recovered/Resolved]
  - Exposure during pregnancy [Unknown]
